FAERS Safety Report 17797590 (Version 1)
Quarter: 2020Q2

REPORT INFORMATION
  Report Type: Spontaneous
  Country: US (occurrence: US)
  Receive Date: 20200515
  Receipt Date: 20200515
  Transmission Date: 20200714
  Serious: No
  Sender: FDA-Public Use
  Company Number: None

PATIENT
  Age: 51 Year
  Sex: Female
  Weight: 70.2 kg

DRUGS (10)
  1. VITAMIN D3 [Concomitant]
     Active Substance: CHOLECALCIFEROL
  2. IBRANCE [Concomitant]
     Active Substance: PALBOCICLIB
  3. CALCIUM 500 + D [Concomitant]
     Active Substance: CALCIUM\VITAMIN D
  4. PEPCID [Concomitant]
     Active Substance: FAMOTIDINE
  5. LEXAPRO [Concomitant]
     Active Substance: ESCITALOPRAM OXALATE
  6. NAPROXEN. [Concomitant]
     Active Substance: NAPROXEN
  7. DEXAMETHASONE. [Concomitant]
     Active Substance: DEXAMETHASONE
  8. ZARXIO [Concomitant]
     Active Substance: FILGRASTIM-SNDZ
  9. CAPECITABINE. [Concomitant]
     Active Substance: CAPECITABINE
  10. CYCLOPHOSPHAMIDE. [Suspect]
     Active Substance: CYCLOPHOSPHAMIDE
     Indication: BREAST CANCER FEMALE
     Route: 048
     Dates: start: 20200110, end: 20200515

REACTIONS (1)
  - Disease progression [None]

NARRATIVE: CASE EVENT DATE: 20200515
